FAERS Safety Report 7148014-5 (Version None)
Quarter: 2010Q4

REPORT INFORMATION
  Report Type: 
  Country: None (occurrence: None)
  Receive Date: 20101209
  Receipt Date: 20101207
  Transmission Date: 20110411
  Serious: Yes (Death, Other)
  Sender: FDA-Public Use
  Company Number: CH-MPIJNJ-2010-05937

PATIENT

DRUGS (5)
  1. VELCADE [Suspect]
     Indication: MANTLE CELL LYMPHOMA
     Dosage: 2.2 MG, CYCLIC
     Route: 042
     Dates: start: 20101014, end: 20101108
  2. VIRACEPT [Suspect]
     Indication: MANTLE CELL LYMPHOMA
     Dosage: 2500 MG, CYCLIC
     Route: 048
     Dates: start: 20101007, end: 20101108
  3. ESOMEPRAZOLE [Concomitant]
     Dosage: 40 MG, UNK
     Route: 048
     Dates: start: 20090526
  4. ALLOPURINOL [Concomitant]
     Dosage: 300 MG, UNK
     Route: 048
  5. ONDANSETRON [Concomitant]
     Dosage: 4 MG, UNK
     Route: 048

REACTIONS (2)
  - CEREBRAL VENOUS THROMBOSIS [None]
  - PNEUMONIA [None]
